FAERS Safety Report 10449553 (Version 1)
Quarter: 2014Q3

REPORT INFORMATION
  Report Type: Spontaneous
  Country: US (occurrence: None)
  Receive Date: 20140911
  Receipt Date: 20140911
  Transmission Date: 20150326
  Serious: No
  Sender: FDA-Public Use
  Company Number: None

PATIENT
  Sex: Male

DRUGS (1)
  1. METOPROLOL TARTRATE 25 MGS [Suspect]
     Active Substance: METOPROLOL TARTRATE
     Dates: start: 201405, end: 201405

REACTIONS (4)
  - Product quality issue [None]
  - Product odour abnormal [None]
  - Nausea [None]
  - Dysgeusia [None]

NARRATIVE: CASE EVENT DATE: 201405
